FAERS Safety Report 14981663 (Version 2)
Quarter: 2018Q2

REPORT INFORMATION
  Report Type: Report from Study
  Country: US (occurrence: US)
  Receive Date: 20180607
  Receipt Date: 20180615
  Transmission Date: 20180711
  Serious: Yes (Hospitalization)
  Sender: FDA-Public Use
  Company Number: US-ROCHE-2122946

PATIENT
  Age: 78 Year
  Sex: Female

DRUGS (5)
  1. ESBRIET [Suspect]
     Active Substance: PIRFENIDONE
     Dosage: WITH MEAL (1-DAY 7,TOTRATION DOSE)
     Route: 048
  2. ESBRIET [Suspect]
     Active Substance: PIRFENIDONE
     Dosage: WITH MEAL (DAY 8-DAY 14,TOTRATION DOSE)
     Route: 048
  3. ESBRIET [Suspect]
     Active Substance: PIRFENIDONE
     Dosage: WITH MEAL (DAY15 ONWARD,TOTRATION DOSE)
     Route: 048
  4. ESBRIET [Suspect]
     Active Substance: PIRFENIDONE
     Indication: INTERSTITIAL LUNG DISEASE
     Route: 048
     Dates: end: 201804
  5. ESBRIET [Suspect]
     Active Substance: PIRFENIDONE
     Dosage: WITH MEALS (MAINTENANCE DOSE)
     Route: 048

REACTIONS (3)
  - Pneumothorax [Not Recovered/Not Resolved]
  - Pneumonia [Recovered/Resolved]
  - Bronchitis [Recovered/Resolved]

NARRATIVE: CASE EVENT DATE: 20180412
